FAERS Safety Report 6583498-2 (Version None)
Quarter: 2010Q1

REPORT INFORMATION
  Report Type: 
  Country: None (occurrence: None)
  Receive Date: 20100216
  Receipt Date: 20100202
  Transmission Date: 20100710
  Serious: Yes (Other)
  Sender: FDA-Public Use
  Company Number: PHHY2009BE43908

PATIENT

DRUGS (3)
  1. EXFORGE [Suspect]
     Indication: HYPERTENSION
     Dosage: 160/5MG DAILY
     Route: 048
     Dates: start: 20090813, end: 20091007
  2. CRESTOR [Concomitant]
  3. ZYLORIC [Concomitant]

REACTIONS (5)
  - ARTHRITIS [None]
  - BURSITIS [None]
  - C-REACTIVE PROTEIN INCREASED [None]
  - GOUT [None]
  - RED BLOOD CELL SEDIMENTATION RATE INCREASED [None]
